FAERS Safety Report 13498923 (Version 1)
Quarter: 2017Q2

REPORT INFORMATION
  Report Type: Spontaneous
  Country: US (occurrence: US)
  Receive Date: 20170430
  Receipt Date: 20170430
  Transmission Date: 20170830
  Serious: Yes (Other)
  Sender: FDA-Public Use
  Company Number: None

PATIENT
  Age: 52 Year
  Sex: Male
  Weight: 103.5 kg

DRUGS (4)
  1. BACTROBAN [Suspect]
     Active Substance: MUPIROCIN\MUPIROCIN CALCIUM
     Indication: NASAL DRYNESS
     Dosage: QUANTITY:1 1 GRAM TUBE;OTHER ROUTE:IN THE NOSE AS NEEDED?
     Dates: start: 20140101, end: 20170429
  2. BACTROBAN [Suspect]
     Active Substance: MUPIROCIN\MUPIROCIN CALCIUM
     Indication: NASAL DISCOMFORT
     Dosage: QUANTITY:1 1 GRAM TUBE;OTHER ROUTE:IN THE NOSE AS NEEDED?
     Dates: start: 20140101, end: 20170429
  3. PRILOSEC [Concomitant]
     Active Substance: OMEPRAZOLE MAGNESIUM
  4. TESTOSTERONE. [Concomitant]
     Active Substance: TESTOSTERONE

REACTIONS (6)
  - Tongue discomfort [None]
  - Product quality issue [None]
  - Pain [None]
  - Quality of life decreased [None]
  - Discomfort [None]
  - Burning mouth syndrome [None]

NARRATIVE: CASE EVENT DATE: 20170401
